FAERS Safety Report 24896812 (Version 3)
Quarter: 2025Q2

REPORT INFORMATION
  Report Type: Spontaneous
  Country: US (occurrence: US)
  Receive Date: 20250128
  Receipt Date: 20250407
  Transmission Date: 20250717
  Serious: No
  Sender: LUNDBECK
  Company Number: US-LUNDBECK-DKLU4009197

PATIENT
  Age: 45 Year
  Sex: Female

DRUGS (4)
  1. NORTHERA [Suspect]
     Active Substance: DROXIDOPA
     Indication: Orthostatic hypotension
     Route: 048
     Dates: start: 201907
  2. NORTHERA [Suspect]
     Active Substance: DROXIDOPA
     Dosage: MORNING
     Route: 048
     Dates: start: 2025
  3. NORTHERA [Suspect]
     Active Substance: DROXIDOPA
     Dosage: AFTERNOON
     Route: 048
     Dates: start: 2025
  4. NORTHERA [Suspect]
     Active Substance: DROXIDOPA
     Dosage: EVENING
     Route: 048
     Dates: start: 2025

REACTIONS (3)
  - Cough [Not Recovered/Not Resolved]
  - Malaise [Not Recovered/Not Resolved]
  - Dizziness [Not Recovered/Not Resolved]

NARRATIVE: CASE EVENT DATE: 20241201
